FAERS Safety Report 7561217-0 (Version None)
Quarter: 2011Q2

REPORT INFORMATION
  Report Type: 
  Country: None (occurrence: None)
  Receive Date: 20110621
  Receipt Date: 20100616
  Transmission Date: 20111010
  Serious: No
  Sender: FDA-Public Use
  Company Number: US-ASTRAZENECA-2010SE28084

PATIENT
  Age: 75 Year
  Sex: Female

DRUGS (8)
  1. CARVEDILOL [Concomitant]
  2. CLONAZEPAM [Concomitant]
  3. ASPIRIN [Concomitant]
  4. SPIRIVA [Concomitant]
  5. LISINOPRIL [Concomitant]
  6. PULMICORT FLEXHALER [Suspect]
     Indication: CHRONIC OBSTRUCTIVE PULMONARY DISEASE
     Dosage: 2 PUFFS DAILY
     Route: 055
     Dates: start: 20100401, end: 20100414
  7. PREVACID [Concomitant]
  8. VITAMIN D [Concomitant]

REACTIONS (9)
  - PULMONARY FUNCTION TEST ABNORMAL [None]
  - FATIGUE [None]
  - DYSPHONIA [None]
  - DYSPNOEA [None]
  - DIZZINESS [None]
  - BALANCE DISORDER [None]
  - GLOSSODYNIA [None]
  - ASTHENIA [None]
  - DRUG DOSE OMISSION [None]
